FAERS Safety Report 5877019-7 (Version None)
Quarter: 2008Q3

REPORT INFORMATION
  Report Type: 
  Country: None (occurrence: None)
  Receive Date: 20080910
  Receipt Date: 20080902
  Transmission Date: 20090109
  Serious: Yes (Other)
  Sender: FDA-Public Use
  Company Number: PHHY2008JP08076

PATIENT
  Age: 73 Year
  Sex: Male

DRUGS (6)
  1. FLUVASTATIN [Suspect]
     Indication: HYPERCHOLESTEROLAEMIA
     Dosage: 30MG, QD
     Route: 048
     Dates: start: 20080428
  2. LIPITOR [Concomitant]
     Dosage: UNK
     Route: 048
     Dates: end: 20080427
  3. PLAVIX [Concomitant]
  4. PHENOBARBITAL TAB [Concomitant]
  5. SELENICA-R [Concomitant]
  6. SERMION [Concomitant]

REACTIONS (1)
  - BLOOD POTASSIUM INCREASED [None]
